FAERS Safety Report 13109043 (Version 3)
Quarter: 2017Q2

REPORT INFORMATION
  Report Type: Spontaneous
  Country: FR (occurrence: FR)
  Receive Date: 20170112
  Receipt Date: 20170512
  Transmission Date: 20170830
  Serious: Yes (Other)
  Sender: FDA-Public Use
  Company Number: FR-PFIZER INC-2017008579

PATIENT
  Age: 65 Year
  Sex: Female

DRUGS (16)
  1. ZYMAD [Concomitant]
     Active Substance: CHOLECALCIFEROL
  2. DAFALGAN [Concomitant]
     Active Substance: ACETAMINOPHEN
  3. TAHOR [Suspect]
     Active Substance: ATORVASTATIN CALCIUM
     Dosage: UNK
     Route: 048
     Dates: end: 20161212
  4. CORDARONE [Concomitant]
     Active Substance: AMIODARONE HYDROCHLORIDE
  5. LEVOTHYROX [Concomitant]
     Active Substance: LEVOTHYROXINE
  6. NOVORAPID [Concomitant]
     Active Substance: INSULIN ASPART
  7. IKOREL [Concomitant]
     Active Substance: NICORANDIL
  8. LYRICA [Suspect]
     Active Substance: PREGABALIN
     Dosage: 75 MG, 2X/DAY
     Route: 048
     Dates: start: 2016, end: 20161213
  9. VANCOMYCIN SANDOZ [Suspect]
     Active Substance: VANCOMYCIN
     Indication: DEVICE RELATED INFECTION
     Dosage: 2 MG, EACH HOUR
     Route: 042
     Dates: start: 20161205, end: 20161209
  10. BISOCE [Concomitant]
     Active Substance: BISOPROLOL
     Dosage: UNK
  11. LASILIX FAIBLE [Concomitant]
     Active Substance: FUROSEMIDE
  12. GENTAMICINE PANPHARMA [Suspect]
     Active Substance: GENTAMICIN
     Indication: DEVICE RELATED INFECTION
     Dosage: 640 MG, SINGLE
     Route: 042
     Dates: start: 20161205, end: 20161205
  13. OXYCONTIN [Suspect]
     Active Substance: OXYCODONE HYDROCHLORIDE
     Dosage: UNK
     Route: 048
     Dates: end: 20161211
  14. CEFEPIME [Suspect]
     Active Substance: CEFEPIME HYDROCHLORIDE
     Indication: DEVICE RELATED INFECTION
     Dosage: 2 G, EVERY 12 HOURS
     Route: 042
     Dates: start: 20161205, end: 20161209
  15. KARDEGIC [Concomitant]
     Active Substance: ASPIRIN LYSINE
  16. PANTOPRAZOLE [Concomitant]
     Active Substance: PANTOPRAZOLE

REACTIONS (5)
  - Overdose [Unknown]
  - Drug level increased [Unknown]
  - Acute kidney injury [Recovered/Resolved]
  - Encephalopathy [Recovered/Resolved]
  - Myoclonus [Recovered/Resolved]

NARRATIVE: CASE EVENT DATE: 201612
